FAERS Safety Report 16739086 (Version 1)
Quarter: 2019Q3

REPORT INFORMATION
  Report Type: Spontaneous
  Country: US (occurrence: US)
  Receive Date: 20190708
  Receipt Date: 20190708
  Transmission Date: 20191005
  Serious: Yes (Hospitalization)
  Sender: FDA-Public Use
  Company Number: None

PATIENT
  Age: 56 Year
  Sex: Male
  Weight: 73 kg

DRUGS (1)
  1. LISINOPRIL. [Suspect]
     Active Substance: LISINOPRIL
     Indication: HYPERTENSION
     Route: 048
     Dates: start: 20131226, end: 20190218

REACTIONS (6)
  - Dyspnoea [None]
  - Therapeutic product effect incomplete [None]
  - Angioedema [None]
  - Palatal oedema [None]
  - Speech disorder [None]
  - Pharyngeal swelling [None]

NARRATIVE: CASE EVENT DATE: 20190218
